FAERS Safety Report 6985933-4 (Version None)
Quarter: 2010Q3

REPORT INFORMATION
  Report Type: 
  Country: None (occurrence: None)
  Receive Date: 20100915
  Receipt Date: 20100907
  Transmission Date: 20110219
  Serious: Yes (Hospitalization)
  Sender: FDA-Public Use
  Company Number: GB-ELI_LILLY_AND_COMPANY-GB201009001620

PATIENT
  Age: 60 Year
  Sex: Male

DRUGS (1)
  1. BYETTA [Suspect]
     Dosage: UNK, UNKNOWN
     Route: 065

REACTIONS (4)
  - ASTHENIA [None]
  - NAUSEA [None]
  - RENAL FAILURE [None]
  - WEIGHT DECREASED [None]
